FAERS Safety Report 17561780 (Version 2)
Quarter: 2020Q1

REPORT INFORMATION
  Report Type: Spontaneous
  Country: BE (occurrence: BE)
  Receive Date: 20200319
  Receipt Date: 20200330
  Transmission Date: 20200409
  Serious: Yes (Other)
  Sender: FDA-Public Use
  Company Number: BE-TEVA-2020-BE-1207780

PATIENT
  Sex: Female

DRUGS (1)
  1. LEVOCETIRIZINE TEVA [Suspect]
     Active Substance: LEVOCETIRIZINE
     Indication: DERMATITIS ATOPIC
     Dosage: 1 DOSAGE FORMS DAILY;
     Route: 065
     Dates: start: 2015

REACTIONS (2)
  - Polyneuropathy [Unknown]
  - Vitamin B12 deficiency [Unknown]
